FAERS Safety Report 5888889-0 (Version None)
Quarter: 2008Q3

REPORT INFORMATION
  Report Type: 
  Country: None (occurrence: None)
  Receive Date: 20080919
  Receipt Date: 20080912
  Transmission Date: 20090109
  Serious: Yes (Other)
  Sender: FDA-Public Use
  Company Number: PHEH2008US08223

PATIENT
  Sex: Female
  Weight: 70.748 kg

DRUGS (4)
  1. RECLAST [Suspect]
     Indication: SENILE OSTEOPOROSIS
     Dosage: 5 MG, UNK
     Dates: start: 20080826
  2. CALCIUM GLUCONATE [Concomitant]
     Dosage: UNK
  3. VITA-B [Concomitant]
     Dosage: UNK
  4. ESTRACE [Concomitant]
     Dosage: UNK

REACTIONS (4)
  - BLINDNESS [None]
  - BONE PAIN [None]
  - INFLUENZA LIKE ILLNESS [None]
  - UVEITIS [None]
